FAERS Safety Report 6771480-1 (Version None)
Quarter: 2010Q2

REPORT INFORMATION
  Report Type: 
  Country: None (occurrence: None)
  Receive Date: 20100616
  Receipt Date: 20100609
  Transmission Date: 20101027
  Serious: Yes (Death, Hospitalization)
  Sender: FDA-Public Use
  Company Number: BE-ROCHE-702524

PATIENT
  Sex: Male
  Weight: 57 kg

DRUGS (18)
  1. BEVACIZUMAB [Suspect]
     Indication: COLORECTAL CANCER
     Dosage: CYCLE 1
     Route: 042
     Dates: start: 20100204, end: 20100318
  2. FLUOROURACIL [Suspect]
     Indication: COLORECTAL CANCER
     Route: 042
     Dates: start: 20100204, end: 20100318
  3. OXALIPLATIN [Suspect]
     Indication: COLORECTAL CANCER
     Route: 042
     Dates: start: 20100204, end: 20100318
  4. FOLINIC ACID [Concomitant]
     Route: 042
     Dates: start: 20100204, end: 20100318
  5. RANITIDINE [Concomitant]
     Dates: start: 20100127, end: 20100401
  6. FENTANYL [Concomitant]
     Dosage: 12.5 MCG/H (12.5 OTHER, 1 IN 72 HR) THEARPY DURATION: 3 DAYS
  7. FENTANYL [Concomitant]
     Dosage: 25 MCG/H (25 MCG, 1 IN 72 HR
     Dates: start: 20100204, end: 20100205
  8. FENTANYL [Concomitant]
     Dosage: 50 MCG, 1 IN 72 HR
     Dates: start: 20100206, end: 20100401
  9. MORPHINE SULFATE [Concomitant]
     Dosage: 10 MG AS NECESSARY
     Dates: start: 20100127, end: 20100402
  10. NULYTELY [Concomitant]
     Indication: CONSTIPATION
     Dosage: 1 BAG (1 OTHER, AS REQUIRED)
     Dates: start: 20090101, end: 20100402
  11. METHYLPREDNISOLONE [Concomitant]
     Dates: start: 20100127, end: 20100401
  12. AMLODIPINE BESYLATE [Concomitant]
     Indication: HYPERTENSION
     Dates: start: 20100204, end: 20100402
  13. ONDANSETRON [Concomitant]
     Indication: PROPHYLAXIS OF NAUSEA AND VOMITING
     Dosage: BEFORE EVERY OXALIPLATIN ADMINISTRATION
     Dates: start: 20100204, end: 20100318
  14. DEXAMETHASONE [Concomitant]
     Indication: PROPHYLAXIS OF NAUSEA AND VOMITING
     Dosage: BEFORE EVERY OXALIPLATIN ADMINISTRATION
     Dates: start: 20100204, end: 20100318
  15. CALCIUM SANDOZ [Concomitant]
     Indication: PROPHYLAXIS
     Dosage: BEFORE AND AFTER EVERY (1 AMPULE)
     Dates: start: 20100204, end: 20100318
  16. MAGNESIUM SULFATE [Concomitant]
     Indication: PROPHYLAXIS
     Dosage: BEFORE AND AFTER EVERY OXALIPLATIN ADMINISTRATION
     Dates: start: 20100204, end: 20100318
  17. PARACETAMOL [Concomitant]
     Dosage: 1000 MG AS REQUIRED
     Dates: start: 20100201, end: 20100305
  18. VITAPANTOL [Concomitant]
     Dosage: DAILY DOSE: ASPPLICATION AS REQUIRED
     Dates: start: 20100304, end: 20100401

REACTIONS (1)
  - PERITONITIS [None]
